FAERS Safety Report 6139717-X (Version None)
Quarter: 2009Q2

REPORT INFORMATION
  Report Type: 
  Country: None (occurrence: None)
  Receive Date: 20090401
  Receipt Date: 20090219
  Transmission Date: 20091009
  Serious: Yes (Death, Other)
  Sender: FDA-Public Use
  Company Number: AT-CELGENEUS-009-21880-09031233

PATIENT
  Sex: Male

DRUGS (4)
  1. REVLIMID [Suspect]
     Indication: MULTIPLE MYELOMA
     Route: 048
     Dates: start: 20071210
  2. REVLIMID [Suspect]
     Route: 048
     Dates: start: 20071030
  3. REVLIMID [Suspect]
     Route: 048
     Dates: start: 20061201, end: 20070401
  4. ASPIRIN [Concomitant]
     Indication: THROMBOSIS PROPHYLAXIS

REACTIONS (2)
  - DEATH [None]
  - INFECTION [None]
